FAERS Safety Report 25912329 (Version 1)
Quarter: 2025Q4

REPORT INFORMATION
  Report Type: Spontaneous
  Country: US (occurrence: US)
  Receive Date: 20251013
  Receipt Date: 20251013
  Transmission Date: 20260117
  Serious: Yes (Other)
  Sender: PIRAMAL
  Company Number: US-PIRAMAL PHARMA LIMITED-2025-PPL-000577

PATIENT

DRUGS (1)
  1. GABLOFEN [Suspect]
     Active Substance: BACLOFEN
     Indication: Product used for unknown indication
     Dosage: 100.6 MICROGRAM, QD
     Route: 037

REACTIONS (1)
  - Postoperative wound infection [Unknown]
